FAERS Safety Report 6426316-5 (Version None)
Quarter: 2009Q4

REPORT INFORMATION
  Report Type: 
  Country: None (occurrence: None)
  Receive Date: 20091104
  Receipt Date: 20091028
  Transmission Date: 20100525
  Serious: Yes (Other)
  Sender: FDA-Public Use
  Company Number: BR-ASTRAZENECA-2009SE23243

PATIENT
  Age: 77 Year
  Sex: Female

DRUGS (7)
  1. SYMBICORT [Suspect]
     Indication: ASTHMA
     Dosage: 160/4.5 MCG
     Route: 055
     Dates: start: 20040101
  2. SYMBICORT [Suspect]
     Dosage: 320/4.5 MCG
     Route: 055
     Dates: start: 20091001
  3. NATURETTI [Concomitant]
     Indication: COLITIS ULCERATIVE
     Dosage: 1 TABLESPOON
     Route: 048
     Dates: start: 19990101
  4. ANASTROZOLE [Concomitant]
  5. ANCORON BIS [Concomitant]
  6. LOSARTAN [Concomitant]
  7. DIURIX [Concomitant]

REACTIONS (6)
  - ARRHYTHMIA [None]
  - BREAST CANCER [None]
  - FLUID RETENTION [None]
  - RHINORRHOEA [None]
  - THROMBOSIS [None]
  - WHEEZING [None]
